FAERS Safety Report 8421410-1 (Version None)
Quarter: 2012Q2

REPORT INFORMATION
  Report Type: 
  Country: None (occurrence: None)
  Receive Date: 20120608
  Receipt Date: 20120606
  Transmission Date: 20120825
  Serious: Yes (Hospitalization)
  Sender: FDA-Public Use
  Company Number: GB-AMGEN-GBRCT2011054478

PATIENT
  Age: 30 Year
  Sex: Male

DRUGS (2)
  1. ERGOCALCIFEROL [Concomitant]
     Dosage: UNK UNK, QD
     Route: 048
     Dates: start: 20101118
  2. DENOSUMAB [Suspect]
     Indication: BONE GIANT CELL TUMOUR
     Dosage: 120 MG, Q4WK
     Route: 058
     Dates: start: 20101118

REACTIONS (1)
  - PNEUMOTHORAX [None]
